FAERS Safety Report 7956488-2 (Version None)
Quarter: 2011Q4

REPORT INFORMATION
  Report Type: 
  Country: None (occurrence: None)
  Receive Date: 20111201
  Receipt Date: 20111116
  Transmission Date: 20120403
  Serious: Yes (Hospitalization)
  Sender: FDA-Public Use
  Company Number: 2011AP002728

PATIENT
  Age: 54 Year
  Sex: Female

DRUGS (3)
  1. CITALOPRAM HYDROBROMIDE [Suspect]
     Indication: MAJOR DEPRESSION
     Dosage: 20 MG;QD
  2. ALCOHOL (ETHANOL) [Suspect]
  3. ZOPICLONE (ZOPICLONE) [Suspect]
     Indication: MAJOR DEPRESSION
     Dosage: 7.5 MG;QD

REACTIONS (12)
  - INTENTIONAL OVERDOSE [None]
  - CONVULSION [None]
  - ALTERED STATE OF CONSCIOUSNESS [None]
  - OXYGEN SATURATION DECREASED [None]
  - HYPERLACTACIDAEMIA [None]
  - BUNDLE BRANCH BLOCK LEFT [None]
  - HYPOKALAEMIA [None]
  - VENTRICULAR TACHYCARDIA [None]
  - BLOOD PRESSURE DECREASED [None]
  - VENTRICULAR FIBRILLATION [None]
  - METABOLIC ACIDOSIS [None]
  - ELECTROCARDIOGRAM QT PROLONGED [None]
